FAERS Safety Report 8017335-6 (Version None)
Quarter: 2012Q1

REPORT INFORMATION
  Report Type: 
  Country: None (occurrence: None)
  Receive Date: 20120102
  Receipt Date: 20111219
  Transmission Date: 20120608
  Serious: Yes (Other)
  Sender: FDA-Public Use
  Company Number: US-ROCHE-1025272

PATIENT
  Sex: Female

DRUGS (9)
  1. NIASPAN [Concomitant]
  2. CYMBALTA [Concomitant]
  3. XOLAIR [Suspect]
     Indication: PRODUCT USED FOR UNKNOWN INDICATION
     Dates: start: 20110221
  4. RAMIPRIL [Concomitant]
  5. DULERA ORAL INHALATION [Concomitant]
  6. NASONEX [Concomitant]
  7. ALLEGRA [Concomitant]
  8. SINGULAIR [Concomitant]
  9. ASPIRIN [Concomitant]

REACTIONS (4)
  - PHARYNGEAL OEDEMA [None]
  - HYPERTENSION [None]
  - PRURITUS [None]
  - RESPIRATORY ARREST [None]
